FAERS Safety Report 9540643 (Version 1)
Quarter: 2013Q3

REPORT INFORMATION
  Report Type: Spontaneous
  Country: US (occurrence: US)
  Receive Date: 20130920
  Receipt Date: 20130920
  Transmission Date: 20140515
  Serious: Yes (Other)
  Sender: FDA-Public Use
  Company Number: CHPA2013US014226

PATIENT
  Age: 79 Year
  Sex: Female

DRUGS (7)
  1. EXCEDRIN TENSION HEADACHE [Suspect]
     Indication: HEADACHE
     Dosage: 1 DF, QD
     Dates: start: 2000
  2. EXCEDRIN TENSION HEADACHE [Suspect]
     Indication: PAIN
  3. ACETYLSALICYLIC ACID [Suspect]
     Dosage: UNK,UNK
  4. ACETAMINOPHEN [Suspect]
     Dosage: 1 DF, QD
  5. SERTRALINE HYDROCHLORIDE [Suspect]
     Indication: NERVOUS SYSTEM DISORDER
     Dosage: UNK,UNK
  6. LOSARTAN [Suspect]
     Indication: HYPERTENSION
     Dosage: UNK,UNK
  7. OMEPRAZOLE [Concomitant]
     Indication: DYSPEPSIA
     Dosage: UNK,UNK

REACTIONS (17)
  - Hypertension [Unknown]
  - Asthma [Unknown]
  - Haematemesis [Recovered/Resolved]
  - Hearing impaired [Not Recovered/Not Resolved]
  - Arthritis [Unknown]
  - Chronic obstructive pulmonary disease [Unknown]
  - Gastric ulcer [Not Recovered/Not Resolved]
  - Nervous system disorder [Unknown]
  - Headache [Unknown]
  - Back disorder [Unknown]
  - Dyspnoea [Recovered/Resolved]
  - Bone disorder [Unknown]
  - Epigastric discomfort [Unknown]
  - Dizziness [Recovering/Resolving]
  - Therapeutic response unexpected [Unknown]
  - Incorrect drug administration duration [Unknown]
  - Underdose [Unknown]
